FAERS Safety Report 7376372-5 (Version None)
Quarter: 2011Q1

REPORT INFORMATION
  Report Type: 
  Country: None (occurrence: None)
  Receive Date: 20110325
  Receipt Date: 20110222
  Transmission Date: 20110831
  Serious: Yes (Hospitalization, Other)
  Sender: FDA-Public Use
  Company Number: US-BAYER-201025763NA

PATIENT
  Sex: Female
  Weight: 111 kg

DRUGS (1)
  1. YAZ [Suspect]
     Indication: CONTRACEPTION
     Dosage: UNK UNK, UNK
     Route: 048
     Dates: start: 20071027, end: 20081201

REACTIONS (3)
  - CHOLELITHIASIS [None]
  - GALLBLADDER INJURY [None]
  - HEPATIC ADENOMA [None]
